FAERS Safety Report 10090708 (Version 5)
Quarter: 2014Q4

REPORT INFORMATION
  Report Type: Spontaneous
  Country: US (occurrence: US)
  Receive Date: 20140421
  Receipt Date: 20141010
  Transmission Date: 20150528
  Serious: Yes (Other)
  Sender: FDA-Public Use
  Company Number: US-009507513-0904USA00043

PATIENT
  Sex: Male
  Weight: 69.39 kg

DRUGS (1)
  1. PROPECIA [Suspect]
     Active Substance: FINASTERIDE
     Indication: ALOPECIA
     Dosage: 1 MG, QD
     Route: 048
     Dates: start: 200501, end: 200807

REACTIONS (77)
  - Genital hypoaesthesia [Not Recovered/Not Resolved]
  - Hormone level abnormal [Not Recovered/Not Resolved]
  - Micturition urgency [Unknown]
  - Onychomycosis [Unknown]
  - Paraesthesia [Unknown]
  - Skin atrophy [Unknown]
  - Erectile dysfunction [Unknown]
  - Muscle atrophy [Not Recovered/Not Resolved]
  - Photosensitivity reaction [Not Recovered/Not Resolved]
  - Tinea infection [Unknown]
  - Headache [Unknown]
  - Penile swelling [Unknown]
  - Dizziness [Unknown]
  - Adverse drug reaction [Unknown]
  - Polydipsia [Unknown]
  - Irritable bowel syndrome [Unknown]
  - Arterial insufficiency [Unknown]
  - Temperature intolerance [Unknown]
  - Back pain [Unknown]
  - Blood testosterone decreased [Unknown]
  - Nocturia [Unknown]
  - Nausea [Unknown]
  - Orgasm abnormal [Unknown]
  - Erectile dysfunction [Unknown]
  - Weight decreased [Not Recovered/Not Resolved]
  - Skin discolouration [Not Recovered/Not Resolved]
  - Gastroenteritis [Unknown]
  - Peripheral sensory neuropathy [Unknown]
  - Psoriasis [Unknown]
  - Chest pain [Unknown]
  - Confusional state [Unknown]
  - Vomiting [Unknown]
  - Adverse event [Not Recovered/Not Resolved]
  - Polyuria [Unknown]
  - Apathy [Unknown]
  - Libido decreased [Not Recovered/Not Resolved]
  - Drug hypersensitivity [Unknown]
  - Weight increased [Not Recovered/Not Resolved]
  - Hypoaesthesia [Not Recovered/Not Resolved]
  - Dry skin [Unknown]
  - Memory impairment [Unknown]
  - Bipolar I disorder [Unknown]
  - Fibrosis [Unknown]
  - Urinary incontinence [Unknown]
  - Penile curvature [Unknown]
  - Stress [Unknown]
  - Penile pain [Unknown]
  - Swelling face [Unknown]
  - Fluid retention [Not Recovered/Not Resolved]
  - Allergic colitis [Unknown]
  - Ocular hyperaemia [Unknown]
  - Dyspnoea [Unknown]
  - Weight fluctuation [Unknown]
  - Eczema [Unknown]
  - Sexual dysfunction [Not Recovered/Not Resolved]
  - Depression [Not Recovered/Not Resolved]
  - Fatigue [Not Recovered/Not Resolved]
  - Acne [Not Recovered/Not Resolved]
  - Motor dysfunction [Unknown]
  - Pollakiuria [Unknown]
  - Muscle spasms [Unknown]
  - Migraine [Unknown]
  - Hypoaesthesia [Unknown]
  - Memory impairment [Unknown]
  - Anxiety [Unknown]
  - Neuropathy peripheral [Unknown]
  - Insomnia [Unknown]
  - Neoplasm malignant [Unknown]
  - Cognitive disorder [Unknown]
  - Venoocclusive disease [Unknown]
  - Vision blurred [Unknown]
  - Muscular weakness [Unknown]
  - Panic attack [Unknown]
  - Male genital atrophy [Unknown]
  - Dysarthria [Unknown]
  - Adverse drug reaction [Unknown]
  - Ejaculation disorder [Unknown]

NARRATIVE: CASE EVENT DATE: 2005
